FAERS Safety Report 24686099 (Version 1)
Quarter: 2024Q4

REPORT INFORMATION
  Report Type: Report from Study
  Country: US (occurrence: US)
  Receive Date: 20241202
  Receipt Date: 20241202
  Transmission Date: 20250115
  Serious: Yes (Other)
  Sender: BAYER HEALTHCARE LLC
  Company Number: US-BAYER-2024A168833

PATIENT

DRUGS (3)
  1. ASPIRIN [Suspect]
     Active Substance: ASPIRIN
  2. WARFARIN [Suspect]
     Active Substance: WARFARIN
  3. CLOPIDOGREL [Concomitant]
     Active Substance: CLOPIDOGREL BISULFATE

REACTIONS (1)
  - Haemorrhagic stroke [None]
